FAERS Safety Report 20153332 (Version 2)
Quarter: 2021Q4

REPORT INFORMATION
  Report Type: Report from Study
  Country: CO (occurrence: CO)
  Receive Date: 20211206
  Receipt Date: 20211218
  Transmission Date: 20220303
  Serious: Yes (Death)
  Sender: FDA-Public Use
  Company Number: CO-BoehringerIngelheim-2021-BI-078865

PATIENT
  Age: 79 Year
  Sex: Male

DRUGS (1)
  1. GILOTRIF [Suspect]
     Active Substance: AFATINIB
     Indication: Lung neoplasm malignant
     Route: 048
     Dates: start: 20201010, end: 2021

REACTIONS (3)
  - Cerebral disorder [Fatal]
  - Movement disorder [Fatal]
  - Seborrhoeic dermatitis [Recovered/Resolved]

NARRATIVE: CASE EVENT DATE: 20201110
